FAERS Safety Report 6156787-3 (Version None)
Quarter: 2009Q2

REPORT INFORMATION
  Report Type: 
  Country: None (occurrence: None)
  Receive Date: 20090416
  Receipt Date: 20090409
  Transmission Date: 20091009
  Serious: Yes (Other)
  Sender: FDA-Public Use
  Company Number: PHEH2009US00978

PATIENT
  Sex: Female
  Weight: 47.166 kg

DRUGS (61)
  1. RECLAST [Suspect]
     Indication: OSTEOPOROSIS
     Dosage: 5 MG
     Dates: start: 20081219
  2. DIMEBON [Concomitant]
  3. MULTIVITAMINS, OTHER COMBINATIONS [Concomitant]
     Dosage: 3-4/WEEK
  4. CALCIUM CITRATE W/VITAMIN D NOS [Concomitant]
  5. MAGNESIUM GLUCONATE [Concomitant]
  6. COD-LIVER OIL [Concomitant]
  7. L-CARNITINE                        /00878601/ [Concomitant]
  8. VITAMIN B COMPLEX CAP [Concomitant]
  9. VITA B1 IN COMB WITH VITA B6 AND/OR VITA B12 [Concomitant]
  10. FOLIC ACID [Concomitant]
  11. ASCORBIC ACID [Concomitant]
     Dosage: 3/D
  12. QUERCETIN [Concomitant]
  13. HIGH GAMMA E [Concomitant]
  14. TOCOTRIENOLS [Concomitant]
  15. GLUCOSAMINE /CHONDROITIN /MSM [Concomitant]
  16. D-RIBOSE [Concomitant]
  17. ACETYLCARNITINE [Concomitant]
  18. ALPHA LIPOIC ACID [Concomitant]
  19. GARLIC [Concomitant]
     Dosage: 3-6/D
  20. TURMERIC [Concomitant]
     Dosage: 3-4/D
  21. PHOSPHATIDYL SERINE [Concomitant]
     Dosage: 1 DF, QOD
  22. TRIMETHYLGLYCINE [Concomitant]
  23. L-GLUTAMINE                             /USA/ [Concomitant]
     Dosage: OCCASIONALLY
  24. N-ACETYLCYSTEINE [Concomitant]
     Dosage: 2/D OR 1/D
  25. PHOSPHATIDYL CHOLINE [Concomitant]
  26. ZINC [Concomitant]
  27. COPPER [Concomitant]
     Dosage: OCCASIONAL
  28. CHROMIUM PICOLINATE [Concomitant]
  29. DIMETHYLETHANOLAMINE [Concomitant]
  30. CRANBERRY [Concomitant]
  31. POLICOSANOL [Concomitant]
  32. BACOPA [Concomitant]
     Dosage: 1 DF, QOD
  33. HUPERZINE [Concomitant]
     Dosage: 1 DF, QOD
  34. LIVER CARE [Concomitant]
     Dosage: 2-3/WK
  35. MILK THISTLE [Concomitant]
     Dosage: OCCASIONALLY
  36. GRAPE SEED EXTRACT [Concomitant]
  37. CINNAMON [Concomitant]
     Dosage: OCCASIONALLY
  38. OLIVE LEAVES EXTRACT [Concomitant]
  39. POMEGRANATE [Concomitant]
     Dosage: CAPSULE OR DRINK
  40. LECITHIN [Concomitant]
  41. PROBIOTICS (MICROORGANISMS W/PROBIOTIC ACTION) [Concomitant]
  42. GOJI BERRY [Concomitant]
     Dosage: 2-3/WK TEMP
  43. SELENIUM [Concomitant]
  44. KELP [Concomitant]
  45. COQ10 [Concomitant]
  46. UBIQUINOL [Concomitant]
  47. TEA, GREEN [Concomitant]
     Dosage: EXTRACT + BEVERAGE
  48. SPIRULINA AND CHLORELLA [Concomitant]
  49. MULTI-ENZYME [Concomitant]
     Dosage: WITH BIG MEALS
  50. FIBER [Concomitant]
     Dosage: POWDER SOME NIGHTS
  51. ALOE VERA [Concomitant]
     Dosage: PERIODICALLY
  52. GREEN BIO-BLEND [Concomitant]
     Dosage: 3-4/WK
  53. MELATONIN [Concomitant]
  54. SNOOZE RIGHT [Concomitant]
  55. NATTOKINASE [Concomitant]
  56. MANGANESE [Concomitant]
  57. BORON [Concomitant]
  58. IPRIFLAVONE [Concomitant]
  59. STRONTIUM [Concomitant]
  60. SUPEROXIDE DISMUTASE [Concomitant]
  61. NAMENDA [Concomitant]

REACTIONS (29)
  - ALPHA 1 GLOBULIN INCREASED [None]
  - ALPHA 2 GLOBULIN INCREASED [None]
  - AORTIC DISORDER [None]
  - ARTHRALGIA [None]
  - BLOOD GLUCOSE INCREASED [None]
  - BONE PAIN [None]
  - DYSSTASIA [None]
  - FATIGUE [None]
  - GAIT DISTURBANCE [None]
  - HEADACHE [None]
  - KYPHOSIS [None]
  - LYMPHOCYTE COUNT DECREASED [None]
  - MUSCULOSKELETAL STIFFNESS [None]
  - MYALGIA [None]
  - PAIN [None]
  - PAIN IN EXTREMITY [None]
  - PARAESTHESIA [None]
  - PARKINSONIAN GAIT [None]
  - POLYMYALGIA RHEUMATICA [None]
  - RED BLOOD CELL SEDIMENTATION RATE INCREASED [None]
  - SCOLIOSIS [None]
  - SINUSITIS [None]
  - SKIN EXFOLIATION [None]
  - SPINAL OSTEOARTHRITIS [None]
  - URINARY CASTS [None]
  - URINE LEUKOCYTE ESTERASE POSITIVE [None]
  - VASCULAR CALCIFICATION [None]
  - WEIGHT DECREASED [None]
  - WHITE BLOOD CELLS URINE POSITIVE [None]
